FAERS Safety Report 12186321 (Version 1)
Quarter: 2016Q1

REPORT INFORMATION
  Report Type: Spontaneous
  Country: US (occurrence: US)
  Receive Date: 20160317
  Receipt Date: 20160317
  Transmission Date: 20160526
  Serious: No
  Sender: FDA-Public Use
  Company Number: US-009507513-1603USA002820

PATIENT
  Age: 36 Year
  Sex: Female

DRUGS (1)
  1. GANIRELIX ACETATE INJECTION [Suspect]
     Active Substance: GANIRELIX ACETATE
     Indication: ASSISTED FERTILISATION
     Dosage: ONE SYRINGE OF 250 MCG PER DAY OF TYPICAL DOSE
     Route: 051

REACTIONS (1)
  - Ovulation disorder [Unknown]

NARRATIVE: CASE EVENT DATE: 201602
